FAERS Safety Report 6686852-3 (Version None)
Quarter: 2010Q2

REPORT INFORMATION
  Report Type: 
  Country: None (occurrence: None)
  Receive Date: 20100419
  Receipt Date: 20100415
  Transmission Date: 20101027
  Serious: Yes (Death, Hospitalization)
  Sender: FDA-Public Use
  Company Number: US-BRISTOL-MYERS SQUIBB COMPANY-15058712

PATIENT
  Age: 84 Year
  Sex: Male

DRUGS (5)
  1. ERBITUX [Suspect]
     Indication: LUNG NEOPLASM MALIGNANT
     Dosage: 1 DOSAGE FORM = 2-3 DOSES.
  2. COUMADIN [Suspect]
  3. METOPROLOL TARTRATE [Suspect]
  4. ASPIRIN [Suspect]
  5. PROSCAR [Suspect]

REACTIONS (3)
  - HAEMORRHAGE INTRACRANIAL [None]
  - INTESTINAL PERFORATION [None]
  - SEPSIS [None]
